FAERS Safety Report 8302035-5 (Version None)
Quarter: 2012Q2

REPORT INFORMATION
  Report Type: 
  Country: None (occurrence: None)
  Receive Date: 20120420
  Receipt Date: 20120413
  Transmission Date: 20120825
  Serious: Yes (Hospitalization, Other)
  Sender: FDA-Public Use
  Company Number: US-MERCK-1202USA02452

PATIENT
  Age: 51 Year
  Sex: Female
  Weight: 71 kg

DRUGS (2)
  1. FOSAMAX [Suspect]
     Indication: OSTEOPOROSIS
     Route: 048
  2. ACTONEL [Suspect]
     Indication: OSTEOPOROSIS
     Route: 048

REACTIONS (39)
  - BUNION [None]
  - LIMB ASYMMETRY [None]
  - SINUS TARSI SYNDROME [None]
  - GASTROOESOPHAGEAL REFLUX DISEASE [None]
  - DERMATITIS CONTACT [None]
  - DRUG THERAPEUTIC INCOMPATIBILITY [None]
  - FOOT DEFORMITY [None]
  - VARICOSE VEIN [None]
  - OSTEOARTHRITIS [None]
  - ANKLE DEFORMITY [None]
  - COLLAGEN DISORDER [None]
  - FOOT FRACTURE [None]
  - PAIN IN EXTREMITY [None]
  - NEUROMA [None]
  - MITRAL VALVE DISEASE [None]
  - LOW TURNOVER OSTEOPATHY [None]
  - DIAPHRAGMATIC HERNIA [None]
  - CATARACT [None]
  - HYPERPARATHYROIDISM [None]
  - GLAUCOMA [None]
  - FRACTURE NONUNION [None]
  - UVEITIS [None]
  - BODY FAT DISORDER [None]
  - EXOSTOSIS [None]
  - OSTEOPENIA [None]
  - INFLAMMATION [None]
  - DIVERTICULITIS INTESTINAL HAEMORRHAGIC [None]
  - FRACTURE DELAYED UNION [None]
  - TELANGIECTASIA [None]
  - PERIOSTITIS [None]
  - NECROSIS [None]
  - ARTHROPATHY [None]
  - HYPERCHOLESTEROLAEMIA [None]
  - FALL [None]
  - FEMUR FRACTURE [None]
  - PERIARTHRITIS [None]
  - LIMB INJURY [None]
  - SPINAL FRACTURE [None]
  - DRUG INEFFECTIVE [None]
